FAERS Safety Report 25954648 (Version 3)
Quarter: 2025Q4

REPORT INFORMATION
  Report Type: Report from Study
  Country: US (occurrence: US)
  Receive Date: 20251024
  Receipt Date: 20251028
  Transmission Date: 20260118
  Serious: No
  Sender: BRISTOL-MYERS SQUIBB COMPANY
  Company Number: US-BRISTOL-MYERS SQUIBB COMPANY-2025-144844

PATIENT
  Age: 91 Year
  Sex: Male
  Weight: 68.04 kg

DRUGS (2)
  1. ELIQUIS [Suspect]
     Active Substance: APIXABAN
     Indication: Deep vein thrombosis
     Dosage: DOSE AND FREQUENCY: TAKE FOUR (4) TABLETS OF 5 MG OF ELIQUIS BY DAY, TWO TABLETS IN THE MORNING AND TWO TABLETS IN THE AFTERNOON FOR 30 DAYS.
     Route: 048
     Dates: start: 202509
  2. ELIQUIS [Suspect]
     Active Substance: APIXABAN
     Indication: Thrombosis

REACTIONS (4)
  - Gout [Unknown]
  - Pollakiuria [Unknown]
  - Off label use [Unknown]
  - Arthralgia [Unknown]

NARRATIVE: CASE EVENT DATE: 20251021
